FAERS Safety Report 7286093-5 (Version None)
Quarter: 2011Q1

REPORT INFORMATION
  Report Type: 
  Country: None (occurrence: None)
  Receive Date: 20110210
  Receipt Date: 20110207
  Transmission Date: 20110831
  Serious: Yes (Other)
  Sender: FDA-Public Use
  Company Number: US-MYLANLABS-2011S1002044

PATIENT
  Age: 15 Year
  Sex: Male
  Weight: 75.3 kg

DRUGS (6)
  1. VERSED [Concomitant]
  2. FENTANYL [Concomitant]
  3. RISPERDAL [Concomitant]
  4. CLINDAMYCIN/BENZOYL PEROXIDE GEL [Concomitant]
  5. KETAMINE HCL [Suspect]
     Indication: ANAESTHESIA
     Route: 042
     Dates: start: 20110128, end: 20110128
  6. MULTIVITAMIN [Concomitant]

REACTIONS (3)
  - HYPOTENSION [None]
  - BRADYCARDIA [None]
  - APNOEA [None]
